FAERS Safety Report 7760666-5 (Version None)
Quarter: 2011Q3

REPORT INFORMATION
  Report Type: 
  Country: None (occurrence: None)
  Receive Date: 20110919
  Receipt Date: 20110909
  Transmission Date: 20111222
  Serious: Yes (Hospitalization)
  Sender: FDA-Public Use
  Company Number: US-ASTRAZENECA-2011SE54589

PATIENT
  Age: 21444 Day
  Sex: Female

DRUGS (3)
  1. KLONOPIN [Concomitant]
  2. PAXIL [Concomitant]
  3. ZOMIG-ZMT [Suspect]
     Route: 048

REACTIONS (1)
  - ABDOMINAL INFECTION [None]
